FAERS Safety Report 13082248 (Version 1)
Quarter: 2017Q1

REPORT INFORMATION
  Report Type: Spontaneous
  Country: TW (occurrence: TW)
  Receive Date: 20170103
  Receipt Date: 20170103
  Transmission Date: 20170428
  Serious: Yes (Other)
  Sender: FDA-Public Use
  Company Number: TW-ABBVIE-17P-153-1827150-00

PATIENT
  Sex: Male

DRUGS (6)
  1. CLOZAPINE. [Suspect]
     Active Substance: CLOZAPINE
     Indication: ALCOHOL WITHDRAWAL SYNDROME
  2. FLURAZEPAM [Concomitant]
     Active Substance: FLURAZEPAM\FLURAZEPAM HYDROCHLORIDE
     Indication: PRODUCT USED FOR UNKNOWN INDICATION
  3. LORAZEPAM. [Suspect]
     Active Substance: LORAZEPAM
     Indication: PRODUCT USED FOR UNKNOWN INDICATION
     Route: 065
     Dates: start: 20110519, end: 20110522
  4. VALPROIC ACID. [Suspect]
     Active Substance: VALPROIC ACID
     Indication: MENTAL DISORDER
     Dosage: AT BEDTIME
     Route: 065
  5. ZOLPIDEM [Concomitant]
     Active Substance: ZOLPIDEM\ZOLPIDEM TARTRATE
     Indication: PRODUCT USED FOR UNKNOWN INDICATION
  6. CLOZAPINE. [Suspect]
     Active Substance: CLOZAPINE
     Indication: MENTAL DISORDER
     Dosage: AT BEDTIME
     Route: 065
     Dates: start: 20110519, end: 20110522

REACTIONS (8)
  - Red blood cell count decreased [Unknown]
  - Product use issue [Unknown]
  - Drug interaction [Unknown]
  - Upper respiratory tract infection [Unknown]
  - White blood cell count increased [Unknown]
  - Aspartate aminotransferase increased [Unknown]
  - Blood creatine phosphokinase increased [Unknown]
  - Platelet count decreased [Unknown]
